FAERS Safety Report 4474496-3 (Version None)
Quarter: 2004Q4

REPORT INFORMATION
  Report Type: 
  Country: None (occurrence: None)
  Receive Date: 20041012
  Receipt Date: 20040927
  Transmission Date: 20050328
  Serious: Yes (Hospitalization)
  Sender: FDA-Public Use
  Company Number: 2004-BE-00098BE

PATIENT
  Age: 78 Year
  Sex: Female

DRUGS (1)
  1. SIFROL-0,008 MG- TABLETTEN (PRAMIPEXOLE DIHYDROCHLORIDE) (TA) (PRAMIPE [Suspect]
     Indication: RESTLESS LEGS SYNDROME
     Dosage: 1 ANZ (0.088 MG, 1); PO
     Route: 048
     Dates: start: 20040821, end: 20040822

REACTIONS (4)
  - CIRCULATORY COLLAPSE [None]
  - FALL [None]
  - FEMORAL NECK FRACTURE [None]
  - SYNCOPE [None]
